FAERS Safety Report 8224518-9 (Version None)
Quarter: 2012Q1

REPORT INFORMATION
  Report Type: 
  Country: None (occurrence: None)
  Receive Date: 20120321
  Receipt Date: 20120313
  Transmission Date: 20120608
  Serious: Yes (Other)
  Sender: FDA-Public Use
  Company Number: US-JNJFOC-20120308216

PATIENT

DRUGS (7)
  1. ETOPOSIDE [Suspect]
     Indication: HODGKIN'S DISEASE
     Route: 042
  2. VINORELBINE [Suspect]
     Indication: HODGKIN'S DISEASE
     Route: 065
  3. IFOSFAMIDE/MESNA KIT [Suspect]
     Indication: HODGKIN'S DISEASE
     Route: 042
  4. GEMCITABINE [Suspect]
     Indication: HODGKIN'S DISEASE
     Route: 065
  5. PEGFILGRASTIM [Concomitant]
     Indication: PALLIATIVE CARE
     Route: 065
  6. CARBOPLATIN [Suspect]
     Indication: HODGKIN'S DISEASE
     Route: 042
  7. DOXORUBICIN HCL [Suspect]
     Indication: HODGKIN'S DISEASE
     Route: 042

REACTIONS (1)
  - SEPTIC SHOCK [None]
